FAERS Safety Report 19700524 (Version 2)
Quarter: 2021Q3

REPORT INFORMATION
  Report Type: Spontaneous
  Country: FR (occurrence: FR)
  Receive Date: 20210813
  Receipt Date: 20210826
  Transmission Date: 20211014
  Serious: Yes (Other)
  Sender: FDA-Public Use
  Company Number: FR-ORGANON-O2106FRA001733

PATIENT
  Age: 25 Year
  Sex: Female

DRUGS (1)
  1. NEXPLANON [Suspect]
     Active Substance: ETONOGESTREL
     Dosage: 1 DOSAGE FORM (IMPLANT)
     Route: 059
     Dates: end: 202107

REACTIONS (5)
  - General anaesthesia [Unknown]
  - Incorrect product administration duration [Unknown]
  - Device placement issue [Recovered/Resolved]
  - Complication associated with device [Recovered/Resolved]
  - Weight increased [Unknown]

NARRATIVE: CASE EVENT DATE: 202107
